FAERS Safety Report 18954569 (Version 1)
Quarter: 2021Q1

REPORT INFORMATION
  Report Type: Spontaneous
  Country: FR (occurrence: FR)
  Receive Date: 20210301
  Receipt Date: 20210301
  Transmission Date: 20210420
  Serious: Yes (Other)
  Sender: FDA-Public Use
  Company Number: FR-UCBSA-2021008512

PATIENT

DRUGS (4)
  1. URBANYL [Concomitant]
     Active Substance: CLOBAZAM
     Indication: SEIZURE
  2. BRIVIACT [Suspect]
     Active Substance: BRIVARACETAM
     Indication: PRODUCT USED FOR UNKNOWN INDICATION
     Dosage: UNKNOWN INITIAL DOSE
  3. KEPPRA [Concomitant]
     Active Substance: LEVETIRACETAM
     Indication: PRODUCT USED FOR UNKNOWN INDICATION
  4. BRIVIACT [Suspect]
     Active Substance: BRIVARACETAM
     Dosage: UPTO 300 MG/DAY

REACTIONS (3)
  - Drug ineffective [Unknown]
  - Overdose [Unknown]
  - Seizure [Unknown]
